FAERS Safety Report 9841431 (Version 1)
Quarter: 2014Q1

REPORT INFORMATION
  Report Type: Spontaneous
  Country: US (occurrence: None)
  Receive Date: 20140123
  Receipt Date: 20140123
  Transmission Date: 20141002
  Serious: Yes (Other)
  Sender: FDA-Public Use
  Company Number: None

PATIENT
  Age: 88 Year
  Sex: Male
  Weight: 88.91 kg

DRUGS (14)
  1. AMIODARONE [Suspect]
     Indication: ATRIAL FIBRILLATION
     Route: 048
  2. AMIODARONE [Suspect]
     Indication: CARDIAC FAILURE CONGESTIVE
     Route: 048
  3. ATORVASTATIN [Concomitant]
  4. LEVOXYL [Concomitant]
  5. DILANTIN [Concomitant]
  6. KAPSEALS [Concomitant]
  7. ASPIRIN [Concomitant]
  8. CARVEDILOL [Concomitant]
  9. FUROSEMIDE [Concomitant]
  10. OXYBUTYNIN [Concomitant]
  11. METANX [Suspect]
  12. MONTELUKAST [Suspect]
  13. IRBESARTAN [Suspect]
  14. CYANOCOBALAMIN [Concomitant]

REACTIONS (4)
  - Atrial fibrillation [None]
  - Drug level decreased [None]
  - Product substitution issue [None]
  - Product quality issue [None]
